FAERS Safety Report 8929555 (Version 1)
Quarter: 2012Q4

REPORT INFORMATION
  Report Type: Spontaneous
  Country: US (occurrence: None)
  Receive Date: 20121120
  Receipt Date: 20121120
  Transmission Date: 20130627
  Serious: Yes (Death)
  Sender: FDA-Public Use
  Company Number: 2012-0690

PATIENT
  Age: 54 Year
  Sex: Male

DRUGS (11)
  1. KYPROLIS [Suspect]
     Indication: MULTIPLE MYELOMA
     Route: 042
     Dates: start: 20120807, end: 201209
  2. STEROID [Suspect]
     Indication: DRUG USE FOR UNKNOWN INDICATION
  3. SYNTHROID (LEVOTHYROXINE SODIUM) [Concomitant]
  4. PRILOSEC (OMEPRAZOLE) [Concomitant]
  5. PROZAC (FLUOXETINE HYDROCHLORIDE) [Concomitant]
  6. MAGNESIUM (MAGNESIUM) [Concomitant]
  7. ACYCLOVIR (ACICLOVIR) [Concomitant]
  8. UNKNOWN ANTIBIOTIC [Concomitant]
  9. MUCINEX (GUAIFENESIN) [Concomitant]
  10. SUDAFED (PSEUDOEPHEDRINE HYDROCHLORIDE) [Concomitant]
  11. VICODIN (PARACETAMOL) [Concomitant]

REACTIONS (10)
  - Vomiting [None]
  - Paranasal sinus hypersecretion [None]
  - Diplopia [None]
  - Eye movement disorder [None]
  - Headache [None]
  - Nausea [None]
  - Food craving [None]
  - Thrombocytopenia [None]
  - Gastrointestinal haemorrhage [None]
  - Oral fungal infection [None]
